FAERS Safety Report 8004889-9 (Version None)
Quarter: 2011Q4

REPORT INFORMATION
  Report Type: 
  Country: None (occurrence: None)
  Receive Date: 20111223
  Receipt Date: 20111223
  Transmission Date: 20120403
  Serious: Yes (Hospitalization)
  Sender: FDA-Public Use
  Company Number: None

PATIENT
  Age: 46 Year
  Sex: Female
  Weight: 79.378 kg

DRUGS (1)
  1. CIPROFLOXACIN HCL [Suspect]
     Indication: GASTRITIS
     Dosage: 2 TABLETS
     Route: 048
     Dates: start: 20110715, end: 20110725

REACTIONS (9)
  - NAUSEA [None]
  - DIARRHOEA [None]
  - INSOMNIA [None]
  - NIGHTMARE [None]
  - TENDON PAIN [None]
  - MYALGIA [None]
  - DEPRESSION [None]
  - HALLUCINATION [None]
  - ANXIETY [None]
